FAERS Safety Report 25456148 (Version 2)
Quarter: 2025Q3

REPORT INFORMATION
  Report Type: Spontaneous
  Country: JP (occurrence: JP)
  Receive Date: 20250619
  Receipt Date: 20250724
  Transmission Date: 20251021
  Serious: Yes (Other)
  Sender: MERCK SHARP & DOHME LLC
  Company Number: JP-009507513-2296357

PATIENT
  Age: 85 Year
  Sex: Female

DRUGS (13)
  1. BELSOMRA [Suspect]
     Active Substance: SUVOREXANT
     Indication: Insomnia
     Route: 048
     Dates: start: 20250513, end: 20250527
  2. JANUVIA [Concomitant]
     Active Substance: SITAGLIPTIN PHOSPHATE
     Route: 048
  3. ZONISAMIDE [Concomitant]
     Active Substance: ZONISAMIDE
     Route: 048
  4. AMANTADINE [Concomitant]
     Active Substance: AMANTADINE
     Route: 048
  5. CARBIDOPA\ENTACAPONE\LEVODOPA [Concomitant]
     Active Substance: CARBIDOPA\ENTACAPONE\LEVODOPA
     Route: 048
  6. ROPINIROLE [Concomitant]
     Active Substance: ROPINIROLE
     Route: 048
  7. AZILECT [Concomitant]
     Active Substance: RASAGILINE MESYLATE
     Route: 048
  8. AMLODIPINE [Concomitant]
     Active Substance: AMLODIPINE BESYLATE
     Route: 048
  9. DAPAGLIFLOZIN [Concomitant]
     Active Substance: DAPAGLIFLOZIN
     Route: 048
  10. GLIMEPIRIDE [Concomitant]
     Active Substance: GLIMEPIRIDE
     Route: 048
  11. PRAVASTATIN [Concomitant]
     Active Substance: PRAVASTATIN
     Route: 048
  12. ESZOPICLONE [Concomitant]
     Active Substance: ESZOPICLONE
     Route: 048
  13. ROZEREM [Concomitant]
     Active Substance: RAMELTEON
     Dosage: 8 MG ,QD
     Route: 048

REACTIONS (1)
  - Hallucination, visual [Recovered/Resolved]

NARRATIVE: CASE EVENT DATE: 20250527
